FAERS Safety Report 9219539 (Version 1)
Quarter: 2013Q1

REPORT INFORMATION
  Report Type: Spontaneous
  Country: US (occurrence: None)
  Receive Date: 20120828
  Receipt Date: 20120828
  Transmission Date: 20140127
  Serious: Yes (Other)
  Sender: FDA-Public Use
  Company Number: 2011BH20671

PATIENT
  Sex: 0

DRUGS (4)
  1. KIOVIG LIQUID_10%_SOLUTION FOR INFUSION_VIAL, GLASS (IMMUNOGLOBULIN, NORMAL HUMAN) (SOLUTION FOR INFUSION) [Suspect]
     Indication: MYASTHENIA GRAVIS
  2. KIOVIG LIQUID_10%_SOLUTION FOR INFUSION_VIAL, GLASS (IMMUNOGLOBULIN, NORMAL HUMAN) (SOLUTION FOR INFUSION) [Suspect]
     Indication: OFF LABEL USE
  3. BENADRYL [Concomitant]
  4. TYLENOL [Concomitant]

REACTIONS (3)
  - Meningitis aseptic [None]
  - Pyrexia [None]
  - Chills [None]
